FAERS Safety Report 15885572 (Version 7)
Quarter: 2020Q1

REPORT INFORMATION
  Report Type: Spontaneous
  Country: HU (occurrence: HU)
  Receive Date: 20190129
  Receipt Date: 20200113
  Transmission Date: 20200409
  Serious: Yes (Hospitalization, Other)
  Sender: FDA-Public Use
  Company Number: HU-MYLANLABS-2019M1007591

PATIENT
  Age: 73 Year
  Sex: Male

DRUGS (6)
  1. ACETYLSALICYLIC ACID [Suspect]
     Active Substance: ASPIRIN
     Indication: PRODUCT USED FOR UNKNOWN INDICATION
     Dosage: 100 MILLIGRAM, QD (100 MG, QD)
     Route: 065
  2. PANTOPRAZOLE [Suspect]
     Active Substance: PANTOPRAZOLE
     Indication: GENERAL PHYSICAL CONDITION
     Dosage: 20 MILLIGRAM, QD (20 MG, QD)
     Route: 065
  3. POTASSIUM CHLORIDE. [Suspect]
     Active Substance: POTASSIUM CHLORIDE
     Indication: PRODUCT USED FOR UNKNOWN INDICATION
     Dosage: 600 MILLIGRAM, QD (600 MG, QD)
     Route: 065
  4. BISOPROLOL [Suspect]
     Active Substance: BISOPROLOL
     Indication: GENERAL PHYSICAL CONDITION
     Dosage: 5 MILLIGRAM, QD (5 MG, QD)
     Route: 065
  5. RIVAROXABAN [Suspect]
     Active Substance: RIVAROXABAN
     Indication: PRODUCT USED FOR UNKNOWN INDICATION
     Dosage: 20 MILLIGRAM, QD (20 MG, QD)
     Route: 065
  6. FUROSEMIDE. [Suspect]
     Active Substance: FUROSEMIDE
     Indication: PRODUCT USED FOR UNKNOWN INDICATION
     Dosage: 125 MILLIGRAM, QD (125 MG, QD)
     Route: 065

REACTIONS (11)
  - Product use in unapproved indication [Unknown]
  - Gait disturbance [Recovered/Resolved]
  - Off label use [Unknown]
  - Ischaemic cardiomyopathy [Unknown]
  - Left ventricular dysfunction [Unknown]
  - Renal impairment [Unknown]
  - Hypertension [Unknown]
  - Acute myocardial infarction [Unknown]
  - Cardiac failure [Unknown]
  - Hyponatraemia [Recovered/Resolved]
  - Ventricular hypokinesia [Unknown]

NARRATIVE: CASE EVENT DATE: 2010
